FAERS Safety Report 23723065 (Version 1)
Quarter: 2024Q2

REPORT INFORMATION
  Report Type: Spontaneous
  Country: US (occurrence: None)
  Receive Date: 20240409
  Receipt Date: 20240409
  Transmission Date: 20240716
  Serious: No
  Sender: FDA-Public Use
  Company Number: None

PATIENT

DRUGS (3)
  1. MYXREDLIN [Suspect]
     Active Substance: INSULIN HUMAN
     Dosage: 100 ML   INJECTABLE   INTRAVENOUS INFUSION ONLY
     Route: 042
  2. ZOSYN [Suspect]
     Active Substance: PIPERACILLIN SODIUM\TAZOBACTAM SODIUM
     Dosage: 50ML?DOSAGE FORM : INJECTABLE?IV BAG
  3. ZOSYN [Suspect]
     Active Substance: PIPERACILLIN SODIUM\TAZOBACTAM SODIUM
     Dosage: 50 ML?INJECTABLE ?  IV BAG

REACTIONS (2)
  - Product packaging confusion [None]
  - Product label confusion [None]
